FAERS Safety Report 6973616-6 (Version None)
Quarter: 2010Q3

REPORT INFORMATION
  Report Type: 
  Country: None (occurrence: None)
  Receive Date: 20100907
  Receipt Date: 20100831
  Transmission Date: 20110219
  Serious: Yes (Hospitalization)
  Sender: FDA-Public Use
  Company Number: 2009SP006960

PATIENT
  Sex: Male
  Weight: 75 kg

DRUGS (4)
  1. VIRAFERONPEG [Suspect]
     Indication: HEPATITIS C
     Dosage: 40 MCG; QW; SC
     Route: 058
     Dates: start: 20071012, end: 20080201
  2. REBETOL [Suspect]
     Indication: HEPATITIS C
     Dosage: 400 MG; QD; PO
     Route: 048
     Dates: start: 20071012, end: 20080203
  3. XYZAL [Concomitant]
  4. ACETAMINOPHEN [Concomitant]

REACTIONS (4)
  - HAEMATURIA [None]
  - NEPHROLITHIASIS [None]
  - PROTEINURIA [None]
  - RENAL COLIC [None]
